FAERS Safety Report 25848058 (Version 1)
Quarter: 2025Q3

REPORT INFORMATION
  Report Type: Spontaneous
  Country: UA (occurrence: UA)
  Receive Date: 20250925
  Receipt Date: 20250925
  Transmission Date: 20251020
  Serious: Yes (Hospitalization, Other)
  Sender: AMGEN
  Company Number: UA-AMGEN-UKRSP2025186297

PATIENT
  Age: 49 Year
  Sex: Female

DRUGS (3)
  1. PROLIA [Suspect]
     Active Substance: DENOSUMAB
     Indication: Osteoporosis postmenopausal
     Dosage: 60 MILLIGRAM, Q6MO
     Route: 065
  2. VITAMIN D3 [Concomitant]
     Active Substance: CHOLECALCIFEROL
  3. CALCIUM CITRATE [Concomitant]
     Active Substance: CALCIUM CITRATE
     Dosage: 4800 MILLIGRAM, QD (EQUIVALENT TO 1000 MG OF ELEMENTAL CALCIUM)

REACTIONS (4)
  - Comminuted fracture [Recovering/Resolving]
  - Fracture delayed union [Recovering/Resolving]
  - Limb injury [Unknown]
  - Fall [Unknown]
